FAERS Safety Report 9750029 (Version 1)
Quarter: 2013Q4

REPORT INFORMATION
  Report Type: Spontaneous
  Country: DE (occurrence: DE)
  Receive Date: 20131212
  Receipt Date: 20131212
  Transmission Date: 20140711
  Serious: No
  Sender: FDA-Public Use
  Company Number: DE-GILEAD-DE-CVT-090658

PATIENT
  Age: 83 Year
  Sex: Male

DRUGS (14)
  1. RANEXA [Suspect]
     Indication: ANGINA UNSTABLE
     Route: 048
     Dates: start: 20090918, end: 20090927
  2. PENTALONG [Concomitant]
     Route: 048
  3. INDOMET                            /00003801/ [Concomitant]
     Route: 048
  4. HCT [Concomitant]
     Route: 048
  5. TORASEMIDE [Concomitant]
     Route: 048
  6. BISOPROLOL                         /00802601/ [Concomitant]
     Route: 048
  7. ASS [Concomitant]
     Route: 048
  8. MODIP [Concomitant]
     Route: 048
  9. IMUREK                             /00001501/ [Concomitant]
     Route: 048
  10. MOLSIDOMIN [Concomitant]
     Route: 048
  11. SYMBICORT [Concomitant]
  12. ATACAND [Concomitant]
     Route: 048
  13. OMEPRAZOL [Concomitant]
     Route: 048
  14. GLYCERYL TRINITRATE [Concomitant]

REACTIONS (1)
  - Constipation [Recovered/Resolved]
